FAERS Safety Report 19963474 (Version 1)
Quarter: 2021Q4

REPORT INFORMATION
  Report Type: Spontaneous
  Country: US (occurrence: US)
  Receive Date: 20211014
  Receipt Date: 20211014
  Transmission Date: 20220303
  Serious: No
  Sender: FDA-Public Use
  Company Number: None

PATIENT
  Sex: Female

DRUGS (1)
  1. TEMOZOLOMIDE [Suspect]
     Active Substance: TEMOZOLOMIDE
     Indication: Brain neoplasm malignant
     Dosage: 270MG DAILYX 5 DAYS BY MOUTH
     Route: 048
     Dates: start: 202109, end: 202109

REACTIONS (2)
  - Rash [None]
  - Platelet count decreased [None]
